FAERS Safety Report 6963011-8 (Version None)
Quarter: 2010Q3

REPORT INFORMATION
  Report Type: 
  Country: None (occurrence: None)
  Receive Date: 20100823
  Receipt Date: 20100621
  Transmission Date: 20110219
  Serious: Yes (Hospitalization)
  Sender: FDA-Public Use
  Company Number: 014236

PATIENT
  Sex: Female

DRUGS (1)
  1. CIMZIA [Suspect]
     Dosage: (STARTED THERAPY 8-9 MONTHS AGO SUBCUTANEOUS0
     Route: 058
     Dates: start: 20090101, end: 20100518

REACTIONS (1)
  - LARGE INTESTINAL STRICTURE [None]
